FAERS Safety Report 9576655 (Version 1)
Quarter: 2013Q4

REPORT INFORMATION
  Report Type: Spontaneous
  Country: US (occurrence: US)
  Receive Date: 20131001
  Receipt Date: 20131001
  Transmission Date: 20140711
  Serious: No
  Sender: FDA-Public Use
  Company Number: US-AMGEN-USASP2013004440

PATIENT
  Sex: Female
  Weight: 86 kg

DRUGS (3)
  1. ENBREL [Suspect]
     Indication: PRODUCT USED FOR UNKNOWN INDICATION
     Dosage: 25 MG, 2 TIMES/WK
     Route: 058
  2. METHOTREXATE [Concomitant]
     Dosage: 250 MG/10, UNK
  3. LEUCOVORIN                         /00566701/ [Concomitant]
     Dosage: 350 MG, UNK

REACTIONS (1)
  - Sinusitis [Unknown]
